FAERS Safety Report 6474883-8 (Version None)
Quarter: 2009Q4

REPORT INFORMATION
  Report Type: 
  Country: None (occurrence: None)
  Receive Date: 20091204
  Receipt Date: 20090213
  Transmission Date: 20100525
  Serious: Yes (Other)
  Sender: FDA-Public Use
  Company Number: ES-ELI_LILLY_AND_COMPANY-ES200902003887

PATIENT
  Age: 67 Year
  Sex: Female

DRUGS (1)
  1. XIGRIS [Suspect]
     Indication: SEPTIC SHOCK
     Dosage: 0.024 MG/KG, EVERY HOUR
     Route: 042
     Dates: start: 20090211, end: 20090213

REACTIONS (1)
  - GASTROINTESTINAL HAEMORRHAGE [None]
